FAERS Safety Report 7634564-1 (Version None)
Quarter: 2011Q3

REPORT INFORMATION
  Report Type: 
  Country: None (occurrence: None)
  Receive Date: 20110725
  Receipt Date: 20110718
  Transmission Date: 20111222
  Serious: Yes (Hospitalization, Other)
  Sender: FDA-Public Use
  Company Number: US-PFIZER INC-2010150876

PATIENT
  Sex: Male

DRUGS (3)
  1. EFFEXOR [Concomitant]
     Indication: DEPRESSION
     Dosage: UNK
     Dates: start: 20070801, end: 20080201
  2. CHANTIX [Suspect]
     Indication: SMOKING CESSATION THERAPY
     Dosage: 1 MG, UNK
     Dates: start: 20070223, end: 20080117
  3. ZOLPIDEM [Concomitant]
     Indication: INSOMNIA
     Dosage: UNK
     Dates: start: 20070701, end: 20080301

REACTIONS (6)
  - INTENTIONAL SELF-INJURY [None]
  - MENTAL DISORDER [None]
  - SUICIDE ATTEMPT [None]
  - DEPRESSION [None]
  - EMOTIONAL DISTRESS [None]
  - ANXIETY [None]
